FAERS Safety Report 8911297 (Version 1)
Quarter: 2012Q4

REPORT INFORMATION
  Report Type: 
  Country: US (occurrence: US)
  Receive Date: 20121116
  Receipt Date: 20121116
  Transmission Date: 20130627
  Serious: Yes (Life-Threatening, Hospitalization)
  Sender: FDA-Public Use
  Company Number: US-BRISTOL-MYERS SQUIBB COMPANY-17103490

PATIENT
  Age: 76 Year
  Sex: Female
  Weight: 86.62 kg

DRUGS (5)
  1. ABILIFY TABS 5 MG [Suspect]
     Dosage: 1 Df:1 tab
     Dates: start: 20121031
  2. ZOCOR [Concomitant]
  3. ATENOLOL [Concomitant]
  4. HYDROCHLOROTHIAZIDE [Concomitant]
  5. ESCITALOPRAM [Concomitant]

REACTIONS (2)
  - Dyspnoea [Unknown]
  - Cardiac valve disease [Unknown]
